FAERS Safety Report 5754789-X (Version None)
Quarter: 2008Q2

REPORT INFORMATION
  Report Type: 
  Country: None (occurrence: None)
  Receive Date: 20080530
  Receipt Date: 20080522
  Transmission Date: 20081010
  Serious: Yes (Disabling)
  Sender: FDA-Public Use
  Company Number: ES-GENENTECH-261472

PATIENT
  Age: 60 Year
  Sex: Male

DRUGS (3)
  1. MABTHERA [Suspect]
     Indication: IDIOPATHIC THROMBOCYTOPENIC PURPURA
     Dosage: 375 MG/M2, 1/WEEK
     Route: 042
     Dates: start: 20071115, end: 20071215
  2. LAMIVUDINE [Suspect]
     Indication: HEPATITIS B
     Dosage: UNK, UNK
     Dates: start: 20080301, end: 20080401
  3. ADEFOVIR DIPIVOXIL KIT [Suspect]
     Indication: HEPATITIS B
     Dosage: UNK, UNK
     Dates: start: 20080301, end: 20080401

REACTIONS (1)
  - HEPATITIS B [None]
